FAERS Safety Report 8683675 (Version 4)
Quarter: 2012Q4

REPORT INFORMATION
  Report Type: 
  Country: CA (occurrence: CA)
  Receive Date: 20120726
  Receipt Date: 20120911
  Transmission Date: 20130627
  Serious: Yes (Other)
  Sender: FDA-Public Use
  Company Number: PHHY2012CA064130

PATIENT
  Age: 54 Year
  Sex: Female

DRUGS (8)
  1. GILENYA [Suspect]
     Indication: RELAPSING-REMITTING MULTIPLE SCLEROSIS
     Dosage: 0.5 mg, QD
     Route: 048
     Dates: start: 20120719
  2. TRAZODONE [Concomitant]
  3. AMITRIPTYLINE [Concomitant]
     Dosage: UNK UKN, UNK
     Dates: end: 201207
  4. EFFEXOR [Concomitant]
  5. ZOPICLONE [Concomitant]
  6. DICETEL [Concomitant]
  7. VENTOLINE INHALATOR [Concomitant]
  8. TOPAMAX [Concomitant]
     Dates: start: 201208

REACTIONS (6)
  - Blood pressure decreased [Unknown]
  - Neuralgia [Unknown]
  - Chest discomfort [Recovering/Resolving]
  - Anxiety [Recovering/Resolving]
  - Bradycardia [Unknown]
  - Dyspnoea [Unknown]
